FAERS Safety Report 11640498 (Version 1)
Quarter: 2015Q4

REPORT INFORMATION
  Report Type: Spontaneous
  Country: GB (occurrence: GB)
  Receive Date: 20151019
  Receipt Date: 20151019
  Transmission Date: 20160304
  Serious: Yes (Other)
  Sender: FDA-Public Use
  Company Number: GB-ASTELLAS-2015US038239

PATIENT
  Age: 58 Year
  Sex: Female

DRUGS (3)
  1. AFATINIB [Concomitant]
     Active Substance: AFATINIB
     Indication: ADENOCARCINOMA
     Dosage: UNK UNK, UNKNOWN FREQ.
     Route: 065
     Dates: start: 201301
  2. ERLOTINIB [Suspect]
     Active Substance: ERLOTINIB
     Indication: ADENOCARCINOMA
     Dosage: UNK, UNKNOWN FREQ.
     Route: 065
     Dates: start: 201001, end: 201301
  3. PEMETREXED [Concomitant]
     Active Substance: PEMETREXED
     Indication: ADENOCARCINOMA
     Dosage: UNK UNK, UNKNOWN FREQ.
     Route: 065

REACTIONS (2)
  - Radiation pneumonitis [Unknown]
  - Vocal cord paralysis [Recovered/Resolved]

NARRATIVE: CASE EVENT DATE: 201302
